FAERS Safety Report 5277977-8 (Version None)
Quarter: 2007Q1

REPORT INFORMATION
  Report Type: 
  Country: None (occurrence: None)
  Receive Date: 20070321
  Receipt Date: 20070316
  Transmission Date: 20070707
  Serious: Yes (Hospitalization)
  Sender: FDA-Public Use
  Company Number: 154086USA

PATIENT
  Sex: Female

DRUGS (3)
  1. PIMOZIDE TABLETS (PIMOZIDE) [Suspect]
     Dosage: 300 MG (300 MG, 1 IN 1 D) ??
  2. ETHANOL [Suspect]
  3. LITHIUM CARBONATE [Concomitant]

REACTIONS (11)
  - ALCOHOL USE [None]
  - ELECTROCARDIOGRAM QT CORRECTED INTERVAL PROLONGED [None]
  - ELECTROCARDIOGRAM QT PROLONGED [None]
  - HAEMORRHAGIC CEREBRAL INFARCTION [None]
  - HEMIANOPIA HOMONYMOUS [None]
  - HYPOTENSION [None]
  - OVERDOSE [None]
  - PNEUMONIA [None]
  - PULMONARY EMBOLISM [None]
  - SUICIDE ATTEMPT [None]
  - TORSADE DE POINTES [None]
